FAERS Safety Report 20045935 (Version 1)
Quarter: 2021Q4

REPORT INFORMATION
  Report Type: Spontaneous
  Country: US (occurrence: US)
  Receive Date: 20211108
  Receipt Date: 20211108
  Transmission Date: 20220303
  Serious: Yes (Other)
  Sender: FDA-Public Use
  Company Number: US-BIOVITRUM-2021US9799

PATIENT
  Sex: Female

DRUGS (1)
  1. KINERET [Suspect]
     Active Substance: ANAKINRA
     Indication: Chronic infantile neurological cutaneous and articular syndrome
     Dosage: DOSE, UNITS AND FREQUENCY: UNKNOWN.
     Route: 058

REACTIONS (7)
  - Foetal hypokinesia [Unknown]
  - Chronic infantile neurological cutaneous and articular syndrome [Unknown]
  - Condition aggravated [Unknown]
  - Screaming [Unknown]
  - Unevaluable event [Unknown]
  - Injection site pain [Unknown]
  - Underdose [Unknown]
